FAERS Safety Report 10724730 (Version 2)
Quarter: 2015Q1

REPORT INFORMATION
  Report Type: Report from Study
  Country: US (occurrence: US)
  Receive Date: 20150120
  Receipt Date: 20150327
  Transmission Date: 20150721
  Serious: Yes (Hospitalization)
  Sender: FDA-Public Use
  Company Number: US-CELGENE-USA-2015012443

PATIENT
  Age: 61 Year
  Sex: Female
  Weight: 96.7 kg

DRUGS (3)
  1. ABRAXANE [Suspect]
     Active Substance: PACLITAXEL
     Indication: NON-SMALL CELL LUNG CANCER
     Dosage: 14.2857 MILLIGRAM/SQ. METER
     Route: 065
     Dates: start: 20150105
  2. CARBOPLATIN. [Suspect]
     Active Substance: CARBOPLATIN
     Indication: NON-SMALL CELL LUNG CANCER
     Route: 065
     Dates: start: 20150105
  3. COUMADIN [Concomitant]
     Active Substance: WARFARIN SODIUM
     Indication: PRODUCT USED FOR UNKNOWN INDICATION
     Dosage: .2857 MILLIGRAM/MILLILITERS
     Route: 048
     Dates: start: 20140516

REACTIONS (3)
  - Acute kidney injury [Recovered/Resolved with Sequelae]
  - Hypotension [Recovered/Resolved]
  - International normalised ratio increased [Not Recovered/Not Resolved]

NARRATIVE: CASE EVENT DATE: 20150107
